FAERS Safety Report 18270072 (Version 2)
Quarter: 2020Q4

REPORT INFORMATION
  Report Type: Spontaneous
  Country: NL (occurrence: NL)
  Receive Date: 20200915
  Receipt Date: 20201122
  Transmission Date: 20210113
  Serious: Yes (Life-Threatening, Hospitalization, Other)
  Sender: FDA-Public Use
  Company Number: NL-BRISTOL-MYERS SQUIBB COMPANY-BMS-2020-074552

PATIENT
  Age: 68 Year
  Sex: Male

DRUGS (7)
  1. ATEZOLIZUMAB. [Concomitant]
     Active Substance: ATEZOLIZUMAB
     Indication: PRODUCT USED FOR UNKNOWN INDICATION
     Route: 065
  2. PEMBROLIZUMAB. [Concomitant]
     Active Substance: PEMBROLIZUMAB
     Indication: PRODUCT USED FOR UNKNOWN INDICATION
     Route: 065
  3. DURVALUMAB. [Concomitant]
     Active Substance: DURVALUMAB
     Indication: PRODUCT USED FOR UNKNOWN INDICATION
     Route: 065
  4. NIVOLUMAB [Suspect]
     Active Substance: NIVOLUMAB
     Indication: NON-SMALL CELL LUNG CANCER
     Dosage: UNAVAILABLE
     Route: 065
  5. IPILIMUMAB [Suspect]
     Active Substance: IPILIMUMAB
     Indication: NON-SMALL CELL LUNG CANCER
     Route: 065
  6. AVELUMAB [Concomitant]
     Active Substance: AVELUMAB
     Indication: PRODUCT USED FOR UNKNOWN INDICATION
     Route: 065
  7. CEMIPLIMAB [Concomitant]
     Active Substance: CEMIPLIMAB
     Indication: PRODUCT USED FOR UNKNOWN INDICATION
     Route: 065

REACTIONS (3)
  - Type 1 diabetes mellitus [Unknown]
  - Intentional product use issue [Unknown]
  - Diabetic ketoacidosis [Unknown]
